FAERS Safety Report 5403863-6 (Version None)
Quarter: 2007Q3

REPORT INFORMATION
  Report Type: 
  Country: None (occurrence: None)
  Receive Date: 20070802
  Receipt Date: 20070731
  Transmission Date: 20080115
  Serious: Yes (Life-Threatening, Hospitalization)
  Sender: FDA-Public Use
  Company Number: AU-BRISTOL-MYERS SQUIBB COMPANY-13864103

PATIENT
  Age: 73 Year
  Sex: Male

DRUGS (9)
  1. MUCOMYST [Suspect]
  2. STREPSILS [Concomitant]
  3. COLOXYL [Concomitant]
  4. FOSAMAX [Concomitant]
  5. SPIRIVA [Concomitant]
  6. OSTELIN [Concomitant]
  7. HYDROCORTISONE [Concomitant]
  8. SALBUTAMOL [Concomitant]
  9. IPRATROPIUM BROMIDE [Concomitant]

REACTIONS (2)
  - ANAPHYLACTIC REACTION [None]
  - RESPIRATORY ARREST [None]
